FAERS Safety Report 23734774 (Version 1)
Quarter: 2024Q2

REPORT INFORMATION
  Report Type: Spontaneous
  Country: IL (occurrence: IL)
  Receive Date: 20240412
  Receipt Date: 20240412
  Transmission Date: 20240716
  Serious: Yes (Disabling)
  Sender: FDA-Public Use
  Company Number: IL-Merck Healthcare KGaA-2024019108

PATIENT
  Age: 50 Year
  Sex: Female

DRUGS (1)
  1. EUTHYROX [Suspect]
     Active Substance: LEVOTHYROXINE SODIUM
     Indication: Product used for unknown indication
     Dates: start: 20240101

REACTIONS (6)
  - Fatigue [Unknown]
  - Dizziness [Unknown]
  - Tremor [Unknown]
  - Palpitations [Unknown]
  - Frequent bowel movements [Unknown]
  - Headache [Unknown]
